FAERS Safety Report 4519579-4 (Version None)
Quarter: 2004Q4

REPORT INFORMATION
  Report Type: 
  Country: None (occurrence: None)
  Receive Date: 20041101
  Receipt Date: 20030918
  Transmission Date: 20050328
  Serious: Yes (Hospitalization)
  Sender: FDA-Public Use
  Company Number: HQWYE925410JUL03

PATIENT
  Age: 62 Year
  Sex: Female
  Weight: 63.56 kg

DRUGS (2)
  1. PREMARIN [Suspect]
     Indication: OESTROGEN REPLACEMENT THERAPY
     Dosage: 0.625 MG/DAILY, ORAL
     Route: 048
     Dates: start: 19770101, end: 20011101
  2. ESTRACE [Concomitant]

REACTIONS (1)
  - BREAST CANCER [None]
